FAERS Safety Report 18531923 (Version 1)
Quarter: 2020Q4

REPORT INFORMATION
  Report Type: Spontaneous
  Country: US (occurrence: US)
  Receive Date: 20201123
  Receipt Date: 20201123
  Transmission Date: 20210114
  Serious: Yes (Other)
  Sender: FDA-Public Use
  Company Number: US-BEH-2020124929

PATIENT
  Sex: Female

DRUGS (1)
  1. HIZENTRA [Suspect]
     Active Substance: HUMAN IMMUNOGLOBULIN G
     Indication: IMMUNODEFICIENCY COMMON VARIABLE
     Dosage: 6-7 GRAMS, QW
     Route: 058
     Dates: start: 201910

REACTIONS (3)
  - Hypertension [Unknown]
  - Cardiac disorder [Unknown]
  - Swelling [Unknown]
